FAERS Safety Report 10667524 (Version 1)
Quarter: 2014Q4

REPORT INFORMATION
  Report Type: Spontaneous
  Country: JP (occurrence: None)
  Receive Date: 20141218
  Receipt Date: 20141218
  Transmission Date: 20150529
  Serious: Yes (Hospitalization, Other)
  Sender: FDA-Public Use
  Company Number: JP-RRD-14-00132

PATIENT
  Age: 18 Year
  Sex: Male
  Weight: 66.9 kg

DRUGS (1)
  1. INDOMETHACIN. [Suspect]
     Active Substance: INDOMETHACIN
     Indication: PATENT DUCTUS ARTERIOSUS

REACTIONS (6)
  - Proteinuria [None]
  - Obesity [None]
  - Hypertension [None]
  - Renal impairment [None]
  - Blood urine present [None]
  - Focal segmental glomerulosclerosis [None]
